FAERS Safety Report 17292448 (Version 1)
Quarter: 2020Q1

REPORT INFORMATION
  Report Type: Spontaneous
  Country: GB (occurrence: GB)
  Receive Date: 20200121
  Receipt Date: 20200121
  Transmission Date: 20200409
  Serious: Yes (Other)
  Sender: FDA-Public Use
  Company Number: GB-BAYER-2019-234533

PATIENT
  Age: 49 Year
  Sex: Female

DRUGS (2)
  1. MIRENA [Suspect]
     Active Substance: LEVONORGESTREL
  2. MIRENA [Suspect]
     Active Substance: LEVONORGESTREL
     Dosage: 20 MCG/24HR, CONT
     Route: 015
     Dates: start: 201909, end: 20191202

REACTIONS (2)
  - Device expulsion [Recovered/Resolved]
  - Genital haemorrhage [None]

NARRATIVE: CASE EVENT DATE: 20191202
